FAERS Safety Report 25477988 (Version 1)
Quarter: 2025Q2

REPORT INFORMATION
  Report Type: Spontaneous
  Country: US (occurrence: None)
  Receive Date: 20250624
  Receipt Date: 20250624
  Transmission Date: 20250716
  Serious: No
  Sender: FDA-CTU
  Company Number: None

PATIENT
  Age: 72 Year
  Sex: Female

DRUGS (2)
  1. LENALIDOMIDE [Suspect]
     Active Substance: LENALIDOMIDE
     Indication: Plasma cell myeloma
     Dosage: FREQUENCY : DAILY;?
     Route: 048
     Dates: start: 20181102
  2. ELIQUIS [Suspect]
     Active Substance: APIXABAN

REACTIONS (8)
  - Confusional state [None]
  - Dizziness [None]
  - Headache [None]
  - Anaemia [None]
  - Electrolyte imbalance [None]
  - Hypoglycaemia [None]
  - Cerebral haemorrhage [None]
  - Infection [None]

NARRATIVE: CASE EVENT DATE: 20250610
